FAERS Safety Report 5075500-4 (Version None)
Quarter: 2006Q3

REPORT INFORMATION
  Report Type: 
  Country: None (occurrence: None)
  Receive Date: 20060714
  Receipt Date: 20060320
  Transmission Date: 20061208
  Serious: No
  Sender: FDA-Public Use
  Company Number: 2006SP001188

PATIENT
  Age: 58 Year
  Sex: Female

DRUGS (5)
  1. LUNESTA [Suspect]
     Indication: INSOMNIA
     Dosage: SEE IMAGE
     Route: 048
     Dates: start: 20060101, end: 20060101
  2. LUNESTA [Suspect]
     Indication: INSOMNIA
     Dosage: SEE IMAGE
     Route: 048
     Dates: start: 20060101, end: 20060301
  3. ASPIRIN [Concomitant]
  4. IBUPROFEN [Concomitant]
  5. CALCIUM GLUCONATE [Concomitant]

REACTIONS (5)
  - EAR DISCOMFORT [None]
  - ERYTHEMA [None]
  - HYPOACUSIS [None]
  - INFLUENZA LIKE ILLNESS [None]
  - PHARYNGOLARYNGEAL PAIN [None]
